FAERS Safety Report 4358089-4 (Version None)
Quarter: 2004Q2

REPORT INFORMATION
  Report Type: 
  Country: None (occurrence: None)
  Receive Date: 20040514
  Receipt Date: 20040512
  Transmission Date: 20050107
  Serious: Yes (Death, Life-Threatening, Hospitalization)
  Sender: FDA-Public Use
  Company Number: US-BRISTOL-MYERS SQUIBB COMPANY-12585162

PATIENT
  Age: 64 Year
  Sex: Male

DRUGS (16)
  1. PACLITAXEL [Suspect]
     Route: 042
     Dates: start: 20040305, end: 20040426
  2. CARBOPLATIN [Suspect]
     Route: 042
     Dates: start: 20040305, end: 20040426
  3. ABX-EGF [Suspect]
     Indication: NON-SMALL CELL LUNG CANCER
     Route: 042
     Dates: start: 20040305, end: 20040426
  4. GRANISETRON HCL [Concomitant]
     Route: 048
     Dates: start: 20040312
  5. OXYCONTIN [Concomitant]
     Route: 048
     Dates: start: 20040305
  6. IBUPROFEN [Concomitant]
     Dates: start: 20040201
  7. SAW PALMETTO [Concomitant]
     Dates: start: 20031101
  8. PROCHLORPERAZINE EDISYLATE [Concomitant]
     Dates: start: 20040312
  9. LORAZEPAM [Concomitant]
     Dates: start: 20040312
  10. DEXAMETHASONE [Concomitant]
     Dates: start: 20040305
  11. MYLANTA [Concomitant]
     Dates: start: 20040312
  12. LOMOTIL [Concomitant]
     Dates: start: 20040312
  13. FAMOTIDINE [Concomitant]
     Dates: start: 20040312
  14. CIMETIDINE HCL [Concomitant]
     Dates: start: 20040305
  15. DIPHENHYDRAMINE HCL [Concomitant]
     Dates: start: 20040305
  16. DOCUSATE SODIUM [Concomitant]
     Dates: start: 20040202

REACTIONS (3)
  - CEREBROVASCULAR ACCIDENT [None]
  - DEHYDRATION [None]
  - SEPSIS [None]
